FAERS Safety Report 8390080-3 (Version None)
Quarter: 2012Q2

REPORT INFORMATION
  Report Type: 
  Country: None (occurrence: None)
  Receive Date: 20120529
  Receipt Date: 20120522
  Transmission Date: 20120825
  Serious: Yes (Death, Disabling)
  Sender: FDA-Public Use
  Company Number: PHHY2012SD033344

PATIENT
  Sex: Male
  Weight: 52 kg

DRUGS (1)
  1. GLEEVEC [Suspect]
     Indication: CHRONIC MYELOID LEUKAEMIA
     Dosage: 400 MG, DAILY
     Route: 048
     Dates: start: 20090628, end: 20111006

REACTIONS (4)
  - ANAEMIA [None]
  - HAEMORRHAGE [None]
  - LEUKOCYTOSIS [None]
  - THROMBOCYTOPENIA [None]
